FAERS Safety Report 10627004 (Version 1)
Quarter: 2014Q4

REPORT INFORMATION
  Report Type: Spontaneous
  Country: FR (occurrence: FR)
  Receive Date: 20141204
  Receipt Date: 20141204
  Transmission Date: 20150529
  Serious: Yes (Other)
  Sender: FDA-Public Use
  Company Number: FR-MALLINCKRODT-T201404270

PATIENT
  Age: 63 Year
  Sex: Female

DRUGS (20)
  1. ANAFRANIL [Concomitant]
     Active Substance: CLOMIPRAMINE HYDROCHLORIDE
     Dosage: UNK
  2. LYRICA [Concomitant]
     Active Substance: PREGABALIN
     Dosage: UNK
  3. BACTRIM [Concomitant]
     Active Substance: SULFAMETHOXAZOLE\TRIMETHOPRIM
     Dosage: UNK
  4. DITROPAN [Concomitant]
     Active Substance: OXYBUTYNIN CHLORIDE
     Dosage: UNK
  5. OFIRMEV [Suspect]
     Active Substance: ACETAMINOPHEN
     Indication: PRODUCT USED FOR UNKNOWN INDICATION
     Dosage: 1 GRAM 1/1 DAY
     Route: 042
     Dates: start: 20141110
  6. OROCAL D3 [Concomitant]
     Active Substance: CALCIUM CARBONATE\CHOLECALCIFEROL
     Dosage: UNK
  7. DANTRIUM [Concomitant]
     Active Substance: DANTROLENE SODIUM
     Dosage: UNK
  8. METHYLPREDNISOLONE. [Suspect]
     Active Substance: METHYLPREDNISOLONE
     Indication: PRODUCT USED FOR UNKNOWN INDICATION
     Dosage: 100 MILLIGRAM 1 DAY
     Route: 042
     Dates: start: 20141110
  9. PIASCLEDINE [Concomitant]
     Active Substance: AVOCADO OIL\SOYBEAN OIL
     Dosage: UNK
  10. ZELITREX [Concomitant]
     Active Substance: VALACYCLOVIR HYDROCHLORIDE
     Dosage: UNK
  11. MABTHERA [Suspect]
     Active Substance: RITUXIMAB
     Indication: NEUROMYELITIS OPTICA
     Dosage: 1 DOSAGE FORM 1/1 DAY
     Route: 042
     Dates: start: 20141027
  12. LEVOTHYROX [Concomitant]
     Active Substance: LEVOTHYROXINE
     Dosage: UNK
  13. SKENAN [Concomitant]
     Active Substance: MORPHINE SULFATE
     Dosage: UNK
  14. TEGRETOL [Concomitant]
     Active Substance: CARBAMAZEPINE
     Dosage: UNK
  15. ATARAX [Suspect]
     Active Substance: HYDROXYZINE\HYDROXYZINE HYDROCHLORIDE
     Indication: PRODUCT USED FOR UNKNOWN INDICATION
     Dosage: 1 DOSAGE FORM 1/1 DAY
     Route: 042
     Dates: start: 20141110
  16. DIFFU-K [Concomitant]
     Active Substance: POTASSIUM CHLORIDE
     Dosage: UNK
  17. ENALAPRIL MALEATE. [Concomitant]
     Active Substance: ENALAPRIL MALEATE
     Dosage: UNK
  18. LIORESAL [Concomitant]
     Active Substance: BACLOFEN
     Dosage: UNK
  19. KARDEGIC [Concomitant]
     Active Substance: ASPIRIN LYSINE
     Dosage: UNK
  20. INEXIUM [Concomitant]
     Active Substance: ESOMEPRAZOLE
     Dosage: UNK

REACTIONS (3)
  - Hypotension [Recovered/Resolved]
  - Altered state of consciousness [Recovered/Resolved]
  - Erythema [Recovered/Resolved]

NARRATIVE: CASE EVENT DATE: 20141110
